FAERS Safety Report 4331267-6 (Version None)
Quarter: 2004Q1

REPORT INFORMATION
  Report Type: 
  Country: None (occurrence: None)
  Receive Date: 20040331
  Receipt Date: 20040318
  Transmission Date: 20041129
  Serious: Yes (Hospitalization, Other)
  Sender: FDA-Public Use
  Company Number: THYR-10159

PATIENT
  Age: 78 Year
  Sex: Male
  Weight: 86 kg

DRUGS (5)
  1. THYROGEN [Suspect]
     Dosage: 0.9 MG QD IM
     Route: 030
     Dates: start: 20040216, end: 20040217
  2. ENANTONE [Concomitant]
  3. CASODEX [Concomitant]
  4. ALDALIX [Concomitant]
  5. LEVOTHYROXINE SODIUM [Concomitant]

REACTIONS (10)
  - BLOOD ALBUMIN DECREASED [None]
  - BLOOD CALCIUM DECREASED [None]
  - BLOOD PRESSURE INCREASED [None]
  - BLOOD THYROID STIMULATING HORMONE INCREASED [None]
  - NEPHROTIC SYNDROME [None]
  - OEDEMA [None]
  - PROTEIN TOTAL DECREASED [None]
  - RED BLOOD CELLS URINE [None]
  - WEIGHT INCREASED [None]
  - WHITE BLOOD CELLS URINE POSITIVE [None]
